FAERS Safety Report 8536915 (Version 2)
Quarter: 2013Q1

REPORT INFORMATION
  Report Type: Spontaneous
  Country: JP (occurrence: JP)
  Receive Date: 20120430
  Receipt Date: 20130206
  Transmission Date: 20140127
  Serious: Yes (Hospitalization)
  Sender: FDA-Public Use
  Company Number: JP-JNJFOC-20120411294

PATIENT
  Age: 42 Year
  Sex: Male
  Weight: 57.1 kg

DRUGS (6)
  1. DUROTEP MT [Suspect]
     Indication: PAIN
     Route: 062
     Dates: start: 201101
  2. MORPHINE HYDROCHLORIDE [Suspect]
     Indication: PAIN
     Route: 065
     Dates: start: 201103
  3. DICLOFENAC SODIUM [Concomitant]
     Route: 065
  4. GABAPENTIN [Concomitant]
     Route: 065
  5. PREGABALIN [Concomitant]
     Route: 065
  6. CLONAZEPAM [Concomitant]
     Route: 065

REACTIONS (3)
  - Secondary hypogonadism [Unknown]
  - Weight decreased [Unknown]
  - Decreased appetite [Unknown]
